FAERS Safety Report 5020042-5 (Version None)
Quarter: 2006Q2

REPORT INFORMATION
  Report Type: 
  Country: None (occurrence: None)
  Receive Date: 20060607
  Receipt Date: 20060510
  Transmission Date: 20061013
  Serious: Yes (Hospitalization)
  Sender: FDA-Public Use
  Company Number: US-GLAXOSMITHKLINE-A0605056A

PATIENT
  Age: 15 Year
  Sex: Female
  Weight: 59.1 kg

DRUGS (2)
  1. LAMICTAL [Suspect]
     Indication: BIPOLAR DISORDER
     Dosage: 50MG UNKNOWN
     Route: 048
  2. LITHIUM CARBONATE [Concomitant]
     Dosage: 600MG AT NIGHT

REACTIONS (1)
  - OVERDOSE [None]
